FAERS Safety Report 6487342-3 (Version None)
Quarter: 2009Q4

REPORT INFORMATION
  Report Type: 
  Country: None (occurrence: None)
  Receive Date: 20091210
  Receipt Date: 20091201
  Transmission Date: 20100525
  Serious: Yes (Death, Other)
  Sender: FDA-Public Use
  Company Number: DE-AMGEN-US378181

PATIENT
  Age: 72 Year
  Sex: Male

DRUGS (15)
  1. ENBREL [Suspect]
     Indication: RHEUMATOID ARTHRITIS
     Route: 058
     Dates: start: 20090722
  2. LANTAREL [Suspect]
     Indication: RHEUMATOID ARTHRITIS
     Route: 065
     Dates: end: 20090908
  3. PALLADONE [Concomitant]
     Route: 048
  4. GLUCOCORTICOIDS [Concomitant]
     Route: 048
  5. QUENSYL [Concomitant]
     Route: 048
  6. ALLOPURINOL [Concomitant]
     Route: 048
  7. SIMVASTATIN [Concomitant]
     Route: 048
  8. RAMIPRIL [Concomitant]
     Route: 048
  9. METOPROLOL [Concomitant]
     Route: 048
  10. TAMSULOSIN [Concomitant]
     Route: 048
  11. NITROFURANTOIN [Concomitant]
     Route: 048
  12. OMEPRAZOLE [Concomitant]
     Route: 048
  13. LACTULOSE [Concomitant]
  14. DIMENHYDRINATE [Concomitant]
     Route: 065
  15. MAGNETRANS [Concomitant]
     Route: 065

REACTIONS (2)
  - DEATH [None]
  - WEIGHT DECREASED [None]
